FAERS Safety Report 22236000 (Version 8)
Quarter: 2024Q3

REPORT INFORMATION
  Report Type: Spontaneous
  Country: US (occurrence: US)
  Receive Date: 20230420
  Receipt Date: 20240902
  Transmission Date: 20241017
  Serious: Yes (Hospitalization)
  Sender: PFIZER
  Company Number: US-PFIZER INC-202300161168

PATIENT
  Age: 73 Year
  Sex: Female
  Weight: 81.633 kg

DRUGS (2)
  1. PREMARIN [Suspect]
     Active Substance: ESTROGENS, CONJUGATED
     Indication: Hysterectomy
     Dosage: 0.625 MG, 1X/DAY (0.625MG ONCE A DAY. 100 TABLETS)
     Route: 048
     Dates: end: 202204
  2. PREMARIN [Suspect]
     Active Substance: ESTROGENS, CONJUGATED
     Dosage: ONE TABLET, ONCE A DAY, 0.625 MILLIGRAMS
     Route: 048
     Dates: end: 202307

REACTIONS (3)
  - Septic shock [Unknown]
  - Mood altered [Unknown]
  - Off label use [Unknown]
